FAERS Safety Report 8523856 (Version 8)
Quarter: 2016Q4

REPORT INFORMATION
  Report Type: Report from Study
  Country: CA (occurrence: CA)
  Receive Date: 20120420
  Receipt Date: 20161123
  Transmission Date: 20170207
  Serious: Yes (Life-Threatening, Other)
  Sender: FDA-Public Use
  Company Number: CA-JNJFOC-20120402624

PATIENT
  Age: 42 Year
  Sex: Female
  Weight: 62 kg

DRUGS (3)
  1. USTEKINUMAB [Suspect]
     Active Substance: USTEKINUMAB
     Indication: PSORIASIS
     Route: 058
     Dates: start: 20100412, end: 20100412
  2. INFLIXIMAB [Suspect]
     Active Substance: INFLIXIMAB
     Indication: PRODUCT USED FOR UNKNOWN INDICATION
     Dates: end: 20110526
  3. ALEFACEPT [Suspect]
     Active Substance: ALEFACEPT
     Indication: PSORIASIS
     Dates: start: 20100730

REACTIONS (2)
  - Drug ineffective [Unknown]
  - Mycosis fungoides [Not Recovered/Not Resolved]

NARRATIVE: CASE EVENT DATE: 20110613
